FAERS Safety Report 22241941 (Version 2)
Quarter: 2023Q2

REPORT INFORMATION
  Report Type: Spontaneous
  Country: US (occurrence: US)
  Receive Date: 20230421
  Receipt Date: 20230517
  Transmission Date: 20230722
  Serious: Yes (Other)
  Sender: FDA-Public Use
  Company Number: US-HORIZON THERAPEUTICS-HZN-2023-002956

PATIENT

DRUGS (1)
  1. TEPEZZA [Suspect]
     Active Substance: TEPROTUMUMAB-TRBW
     Indication: Endocrine ophthalmopathy
     Dosage: INTRAVENOUS INFUSION
     Route: 042

REACTIONS (7)
  - Somnolence [Unknown]
  - Inflammatory bowel disease [Unknown]
  - Condition aggravated [Unknown]
  - Alopecia [Unknown]
  - Fatigue [Unknown]
  - Endocrine ophthalmopathy [Unknown]
  - Condition aggravated [Unknown]
